FAERS Safety Report 4716684-4 (Version None)
Quarter: 2005Q3

REPORT INFORMATION
  Report Type: 
  Country: None (occurrence: None)
  Receive Date: 20050719
  Receipt Date: 20050712
  Transmission Date: 20060218
  Serious: Yes (Other)
  Sender: FDA-Public Use
  Company Number: US-BRISTOL-MYERS SQUIBB COMPANY-13034384

PATIENT
  Age: 48 Year
  Sex: Male

DRUGS (8)
  1. ERBITUX [Suspect]
     Dosage: 56 MG WAS ADMINISTERED OF CYCLE DOSE OF 420 MG
     Route: 042
  2. FLUOROURACIL [Concomitant]
  3. CYSTOSPAZ [Concomitant]
  4. CARBOPLATIN [Concomitant]
  5. IFEX [Concomitant]
  6. MESNA [Concomitant]
  7. NEULASTA [Concomitant]
  8. ARANESP [Concomitant]

REACTIONS (5)
  - ABDOMINAL PAIN [None]
  - DYSPNOEA [None]
  - ERYTHEMA [None]
  - NAUSEA [None]
  - PARAESTHESIA [None]
